FAERS Safety Report 9291731 (Version 6)
Quarter: 2014Q1

REPORT INFORMATION
  Report Type: Spontaneous
  Country: CA (occurrence: CA)
  Receive Date: 20130516
  Receipt Date: 20140114
  Transmission Date: 20141002
  Serious: Yes (Other)
  Sender: FDA-Public Use
  Company Number: CA-ROCHE-1224648

PATIENT
  Sex: Female

DRUGS (12)
  1. XOLAIR [Suspect]
     Indication: ASTHMA
     Route: 058
     Dates: start: 20130426
  2. XOLAIR [Suspect]
     Route: 065
     Dates: start: 20130524
  3. XOLAIR [Suspect]
     Route: 065
     Dates: start: 20130607
  4. XOLAIR [Suspect]
     Route: 065
     Dates: start: 20130621
  5. XOLAIR [Suspect]
     Route: 065
     Dates: start: 20130802
  6. ALVESCO [Concomitant]
  7. AVELOX [Concomitant]
  8. ADVAIR [Concomitant]
  9. NASONEX [Concomitant]
  10. SALBUTAMOL [Concomitant]
  11. SINGULAIR [Concomitant]
  12. SPIRIVA [Concomitant]

REACTIONS (4)
  - Blood pressure systolic increased [Not Recovered/Not Resolved]
  - Heart rate increased [Not Recovered/Not Resolved]
  - Productive cough [Unknown]
  - Blood iron decreased [Unknown]
